FAERS Safety Report 8972374 (Version 1)
Quarter: 2012Q4

REPORT INFORMATION
  Report Type: 
  Country: US (occurrence: US)
  Receive Date: 20121218
  Receipt Date: 20121218
  Transmission Date: 20130627
  Serious: Yes (Other)
  Sender: FDA-Public Use
  Company Number: CHPA2012US024942

PATIENT
  Age: 59 Year
  Sex: Female

DRUGS (1)
  1. TRIAMINIC COLD AND ALLERGY [Suspect]
     Indication: OROPHARYNGEAL PAIN
     Dosage: 2 TSP, PRN
     Route: 048
     Dates: start: 1987

REACTIONS (3)
  - Hypertension [Recovered/Resolved]
  - Therapeutic response unexpected [Unknown]
  - Off label use [Unknown]
